FAERS Safety Report 7989654-0 (Version None)
Quarter: 2011Q4

REPORT INFORMATION
  Report Type: 
  Country: None (occurrence: None)
  Receive Date: 20111215
  Receipt Date: 20111201
  Transmission Date: 20120403
  Serious: Yes (Other)
  Sender: FDA-Public Use
  Company Number: NSR_00324_2011

PATIENT
  Sex: Male

DRUGS (3)
  1. METOCLOPRAMIDE [Concomitant]
  2. METOCLOPRAMIDE [Suspect]
     Indication: IMPAIRED GASTRIC EMPTYING
     Dosage: 10 MG TID ORAL; DF [1 OR 1/2 OF A PILL] ORAL
     Route: 048
     Dates: start: 20110101, end: 20110101
  3. METOCLOPRAMIDE [Suspect]
     Indication: IMPAIRED GASTRIC EMPTYING
     Dosage: 10 MG TID ORAL; DF [1 OR 1/2 OF A PILL] ORAL
     Route: 048
     Dates: start: 20110606, end: 20110101

REACTIONS (8)
  - MUSCLE SPASTICITY [None]
  - BLOOD PRESSURE INCREASED [None]
  - MENTAL IMPAIRMENT [None]
  - RASH [None]
  - BLOOD PRESSURE FLUCTUATION [None]
  - ANXIETY [None]
  - EXTRAPYRAMIDAL DISORDER [None]
  - NAUSEA [None]
